FAERS Safety Report 14407787 (Version 1)
Quarter: 2018Q1

REPORT INFORMATION
  Report Type: Spontaneous
  Country: IT (occurrence: IT)
  Receive Date: 20180118
  Receipt Date: 20180118
  Transmission Date: 20180509
  Serious: Yes (Hospitalization, Other)
  Sender: FDA-Public Use
  Company Number: IT-TEVA-2017-IT-827605

PATIENT
  Sex: Female

DRUGS (1)
  1. COPAXONE [Suspect]
     Active Substance: GLATIRAMER ACETATE
     Dosage: UNKNOWN FORM OF STRENGTH
     Route: 065

REACTIONS (9)
  - Heart rate abnormal [Unknown]
  - Feeling abnormal [Unknown]
  - Burning sensation [Unknown]
  - Tinnitus [Unknown]
  - Drug hypersensitivity [Unknown]
  - Multiple sclerosis relapse [Unknown]
  - Urticaria [Unknown]
  - Dyspnoea [Unknown]
  - Fear [Unknown]

NARRATIVE: CASE EVENT DATE: 201701
